FAERS Safety Report 11052000 (Version 1)
Quarter: 2015Q2

REPORT INFORMATION
  Report Type: Spontaneous
  Country: CA (occurrence: CA)
  Receive Date: 20150421
  Receipt Date: 20150421
  Transmission Date: 20150821
  Serious: Yes (Death, Hospitalization, Other)
  Sender: FDA-Public Use
  Company Number: CA-BAXTER-2015BAX020019

PATIENT
  Age: 77 Year
  Sex: Female
  Weight: 59 kg

DRUGS (2)
  1. DIANEAL LOW CALCIUM PERITONEAL DIALYSIS SOLUTION WITH DEXTROSE [Suspect]
     Active Substance: CALCIUM CHLORIDE\DEXTROSE\MAGNESIUM CHLORIDE\SODIUM CHLORIDE\SODIUM LACTATE
     Indication: PERITONEAL DIALYSIS
     Route: 033
  2. DIANEAL W/ DEXTROSE 2.5% [Suspect]
     Active Substance: CALCIUM CHLORIDE\DEXTROSE\MAGNESIUM CHLORIDE\SODIUM CHLORIDE\SODIUM LACTATE
     Indication: PERITONEAL DIALYSIS
     Route: 033

REACTIONS (18)
  - Poor peripheral circulation [Unknown]
  - Arterial occlusive disease [Recovered/Resolved]
  - Clostridium difficile infection [Unknown]
  - Immune system disorder [Unknown]
  - Death [Fatal]
  - Mobility decreased [Unknown]
  - Bacterial infection [Unknown]
  - Abscess intestinal [Unknown]
  - Peritonitis [Unknown]
  - Vomiting [Unknown]
  - Hypophagia [Unknown]
  - Ageusia [Unknown]
  - Condition aggravated [Unknown]
  - Asthenia [Unknown]
  - Regurgitation [Unknown]
  - Intestinal obstruction [Unknown]
  - Intestinal polyp [Unknown]
  - Decreased appetite [Unknown]

NARRATIVE: CASE EVENT DATE: 20150407
